FAERS Safety Report 7774811-9 (Version None)
Quarter: 2011Q3

REPORT INFORMATION
  Report Type: 
  Country: None (occurrence: None)
  Receive Date: 20110923
  Receipt Date: 20110913
  Transmission Date: 20111222
  Serious: Yes (Other)
  Sender: FDA-Public Use
  Company Number: US-JNJFOC-20110802037

PATIENT
  Sex: Male
  Weight: 103.42 kg

DRUGS (19)
  1. REMICADE [Suspect]
     Dosage: 4 OUT OF 12 INFUSIONS PATIENT RECEIVED A DOSE OF 5 MG/KG.
     Route: 042
  2. GLUCOSAMINE + CHONDROITIN SULFATE [Concomitant]
     Route: 065
  3. METOPROLOL SUCCINATE [Concomitant]
     Route: 065
  4. BICALUTAMIDE [Concomitant]
  5. VITAMIN D [Concomitant]
     Route: 065
  6. IMODIUM [Concomitant]
     Route: 065
  7. LOVAZA [Concomitant]
     Route: 065
  8. SIMVASTATIN [Concomitant]
     Route: 065
  9. REMICADE [Suspect]
     Indication: COLITIS ULCERATIVE
     Dosage: 8 OUT OF 12 INFUSIONS, PATIENT RECEIVED 10MG/KG DOSE.
     Route: 042
  10. FLAGYL [Concomitant]
     Route: 065
  11. ASPIRIN [Concomitant]
     Route: 065
  12. CALCIUM CARBONATE [Concomitant]
     Route: 065
  13. MERCAPTOPURINE [Concomitant]
     Route: 065
  14. LIALDA [Concomitant]
     Route: 065
  15. NIASPAN [Concomitant]
     Route: 065
  16. LUPRON DEPOT [Concomitant]
     Route: 065
  17. LISINOPRIL [Concomitant]
     Route: 065
  18. CIPROFLOXACIN [Concomitant]
     Route: 065
  19. FERROUS SULFATE TAB [Concomitant]
     Route: 065

REACTIONS (2)
  - ADENOCARCINOMA PANCREAS [None]
  - URTICARIA [None]
